FAERS Safety Report 8356349-3 (Version None)
Quarter: 2012Q2

REPORT INFORMATION
  Report Type: 
  Country: None (occurrence: None)
  Receive Date: 20120514
  Receipt Date: 20120504
  Transmission Date: 20120825
  Serious: No
  Sender: FDA-Public Use
  Company Number: US-B.I. PHARMACEUTICALS,INC./RIDGEFIELD-2012-BP-10152BP

PATIENT
  Sex: Female

DRUGS (4)
  1. PRADAXA [Suspect]
     Indication: ATRIAL FIBRILLATION
     Dosage: 300 MG
     Route: 048
     Dates: start: 20110601
  2. TIKOSYN [Concomitant]
     Indication: ATRIAL FIBRILLATION
     Route: 048
  3. DULCOLAX [Concomitant]
     Indication: CONSTIPATION
     Route: 048
     Dates: start: 20120101
  4. LUTEIN [Concomitant]
     Indication: EYE DISORDER
     Route: 048

REACTIONS (2)
  - PARAESTHESIA [None]
  - AMNESIA [None]
